FAERS Safety Report 9483981 (Version 1)
Quarter: 2013Q3

REPORT INFORMATION
  Report Type: Report from Study
  Country: MX (occurrence: MX)
  Receive Date: 20130828
  Receipt Date: 20130828
  Transmission Date: 20140515
  Serious: Yes (Other)
  Sender: FDA-Public Use
  Company Number: PHHY2013MX093458

PATIENT
  Age: 87 Year
  Sex: Female

DRUGS (1)
  1. CO-DIOVAN [Suspect]
     Indication: HYPERTENSION
     Dosage: 1 DF, (80 MG VALS/ 12,5 MG HYDRO) DAILY
     Route: 048
     Dates: start: 200604

REACTIONS (2)
  - Cataract [Not Recovered/Not Resolved]
  - Eye disorder [Not Recovered/Not Resolved]
